FAERS Safety Report 12302039 (Version 1)
Quarter: 2016Q2

REPORT INFORMATION
  Report Type: Spontaneous
  Country: US (occurrence: US)
  Receive Date: 20160425
  Receipt Date: 20160425
  Transmission Date: 20160815
  Serious: No
  Sender: FDA-Public Use
  Company Number: US-PFIZER INC-2016223520

PATIENT
  Sex: Female

DRUGS (1)
  1. XELJANZ [Suspect]
     Active Substance: TOFACITINIB CITRATE
     Dosage: 5 MG, UNK
     Dates: start: 2016

REACTIONS (4)
  - Drug effect incomplete [Unknown]
  - Swelling [Recovering/Resolving]
  - Arthritis [Recovering/Resolving]
  - Peripheral swelling [Recovering/Resolving]
